FAERS Safety Report 10086738 (Version 3)
Quarter: 2014Q2

REPORT INFORMATION
  Report Type: Spontaneous
  Country: JP (occurrence: JP)
  Receive Date: 20140418
  Receipt Date: 20140619
  Transmission Date: 20141212
  Serious: Yes (Other)
  Sender: FDA-Public Use
  Company Number: JP-PFIZER INC-2014105784

PATIENT
  Age: 74 Year
  Sex: Male

DRUGS (14)
  1. ZYVOX [Suspect]
     Indication: POST PROCEDURAL INFECTION
     Dosage: 1200 MG, DAILY
     Route: 048
     Dates: start: 20140411, end: 20140416
  2. TRAMAL [Concomitant]
     Indication: PAIN
     Dosage: 75 MG DAILY (50 MG ONCE IN THE MORNING AND 25 MG ONCE IN THE EVENING)
     Route: 048
  3. PRIMPERAN [Concomitant]
     Dosage: 5 MG, UNK
     Route: 048
  4. METHYCOBAL [Concomitant]
     Dosage: 500 UG, UNK
     Route: 048
  5. POLARAMINE [Concomitant]
     Dosage: 2 MG, UNK
     Route: 048
  6. MAGMITT [Concomitant]
     Dosage: 330 MG, UNK
     Route: 048
  7. CALONAL [Concomitant]
     Dosage: 200 MG, UNK
     Route: 048
  8. TEPRENONE [Concomitant]
     Dosage: 50 MG, UNK
     Route: 048
  9. CRESTOR [Concomitant]
     Dosage: 2.5 MG, UNK
     Route: 048
  10. NEXIUM [Concomitant]
     Dosage: 20 MG, UNK
     Route: 048
  11. FEBURIC [Concomitant]
     Dosage: 20 MG, UNK
     Route: 048
  12. MUCOSAL [Concomitant]
     Dosage: 15 MG, UNK
     Route: 048
  13. OLMETEC [Concomitant]
     Dosage: 20 MG, UNK
     Route: 048
  14. DEZOLAM [Concomitant]
     Dosage: 0.5 MG, UNK
     Route: 048

REACTIONS (2)
  - Loss of consciousness [Recovered/Resolved]
  - Convulsion [Recovered/Resolved]
